FAERS Safety Report 12848855 (Version 9)
Quarter: 2017Q3

REPORT INFORMATION
  Report Type: Report from Study
  Country: None (occurrence: JP)
  Receive Date: 20161014
  Receipt Date: 20170904
  Transmission Date: 20171127
  Serious: Yes (Death, Life-Threatening, Hospitalization, Other)
  Sender: FDA-Public Use
  Company Number: JP-ABBVIE-16K-087-1752458-00

PATIENT
  Age: 83 Year
  Sex: Female
  Weight: 29 kg

DRUGS (20)
  1. HUMIRA [Suspect]
     Active Substance: ADALIMUMAB
     Route: 058
     Dates: start: 20150804, end: 20160302
  2. PREDNISOLONE. [Concomitant]
     Active Substance: PREDNISOLONE
     Route: 048
     Dates: start: 20150901, end: 20150915
  3. PREDNISOLONE. [Concomitant]
     Active Substance: PREDNISOLONE
     Route: 048
     Dates: start: 20150916, end: 20150922
  4. CEFMETAZOLE SODIUM [Concomitant]
     Active Substance: CEFMETAZOLE SODIUM
     Indication: PYREXIA
     Dates: start: 20160329
  5. PREDNISOLONE. [Concomitant]
     Active Substance: PREDNISOLONE
     Route: 048
     Dates: start: 20150923, end: 20151101
  6. HUMIRA [Suspect]
     Active Substance: ADALIMUMAB
     Route: 058
     Dates: start: 20150721, end: 20150721
  7. PREDONINE [Suspect]
     Active Substance: PREDNISOLONE
     Indication: COLITIS ULCERATIVE
     Route: 065
     Dates: start: 20150704, end: 20150712
  8. PREDONINE [Suspect]
     Active Substance: PREDNISOLONE
     Route: 065
     Dates: start: 20150721, end: 20150803
  9. OMEPRAZOLE. [Concomitant]
     Active Substance: OMEPRAZOLE
     Indication: PROPHYLAXIS
     Route: 048
     Dates: start: 20150623, end: 20160329
  10. MESALAZINE [Concomitant]
     Active Substance: MESALAMINE
     Indication: COLITIS ULCERATIVE
     Route: 054
     Dates: start: 20150622, end: 20150630
  11. PREDONINE [Suspect]
     Active Substance: PREDNISOLONE
     Route: 065
     Dates: start: 20150713, end: 20150720
  12. PREDNISOLONE. [Concomitant]
     Active Substance: PREDNISOLONE
     Indication: COLITIS ULCERATIVE
     Route: 048
     Dates: start: 20150704, end: 20150817
  13. HUMIRA [Suspect]
     Active Substance: ADALIMUMAB
     Route: 058
     Dates: start: 20160331, end: 20160428
  14. PREDNISOLONE. [Concomitant]
     Active Substance: PREDNISOLONE
     Route: 048
     Dates: start: 20150818, end: 20150831
  15. CEFOPERAZONE SODIUM AND SULBACTAM SODIUM [Concomitant]
     Active Substance: CEFOPERAZONE SODIUM\SULBACTAM SODIUM
     Indication: PYREXIA
     Dates: start: 20160329
  16. HUMIRA [Suspect]
     Active Substance: ADALIMUMAB
     Indication: COLITIS ULCERATIVE
     Route: 058
     Dates: start: 20150707, end: 20150707
  17. MESALAZINE [Concomitant]
     Active Substance: MESALAMINE
     Indication: COLITIS ULCERATIVE
     Route: 048
     Dates: start: 20150622, end: 20150625
  18. MESALAZINE [Concomitant]
     Active Substance: MESALAMINE
     Route: 054
     Dates: start: 20160329, end: 20160329
  19. MESALAZINE [Concomitant]
     Active Substance: MESALAMINE
     Dates: start: 20160329
  20. HUMIRA [Suspect]
     Active Substance: ADALIMUMAB
     Route: 058
     Dates: start: 20160526

REACTIONS (6)
  - Cholangitis [Fatal]
  - Cytomegalovirus infection [Recovered/Resolved]
  - Pleural effusion [Not Recovered/Not Resolved]
  - Staphylococcal sepsis [Fatal]
  - Aspergillus infection [Recovered/Resolved]
  - Infection [Unknown]

NARRATIVE: CASE EVENT DATE: 20150812
